FAERS Safety Report 16570816 (Version 3)
Quarter: 2019Q4

REPORT INFORMATION
  Report Type: Other
  Country: CA (occurrence: CA)
  Receive Date: 20190715
  Receipt Date: 20191011
  Transmission Date: 20200122
  Serious: Yes (Other)
  Sender: FDA-Public Use
  Company Number: CA-TITAN PHARMACEUTICALS-2019TAN00025

PATIENT
  Sex: Female
  Weight: 3 kg

DRUGS (26)
  1. SUBUTEX [Suspect]
     Active Substance: BUPRENORPHINE HYDROCHLORIDE
     Indication: DRUG DEPENDENCE
     Dosage: 1 DOSAGE UNITS, 1X/DAY
     Route: 064
  2. SUBUTEX [Suspect]
     Active Substance: BUPRENORPHINE HYDROCHLORIDE
     Indication: EXPOSURE VIA BREAST MILK
     Dosage: UNK
     Route: 063
  3. BUPRENORPHINE. [Suspect]
     Active Substance: BUPRENORPHINE
     Indication: EXPOSURE VIA BREAST MILK
     Dosage: UNK
     Route: 063
  4. BUPRENORPHINE HYDROCHLORIDE; NALOXONE HYDROCHLORIDE [Suspect]
     Active Substance: BUPRENORPHINE HYDROCHLORIDE\NALOXONE HYDROCHLORIDE
     Indication: DRUG DEPENDENCE
     Dosage: UNK MG
     Route: 064
  5. NICOTINE. [Suspect]
     Active Substance: NICOTINE
     Indication: EXPOSURE VIA BREAST MILK
     Dosage: UNK
     Route: 064
     Dates: start: 2017, end: 2017
  6. NICOTINE. [Suspect]
     Active Substance: NICOTINE
     Indication: EXPOSURE DURING PREGNANCY
  7. BUPRENORPHINE HYDROCHLORIDE. [Suspect]
     Active Substance: BUPRENORPHINE HYDROCHLORIDE
     Indication: EXPOSURE VIA BREAST MILK
     Dosage: 8-16 MG, 1X/DAY
     Route: 064
     Dates: start: 2017, end: 2017
  8. BUPRENORPHINE HYDROCHLORIDE. [Suspect]
     Active Substance: BUPRENORPHINE HYDROCHLORIDE
     Indication: EXPOSURE DURING PREGNANCY
  9. BUPRENORPHINE HYDROCHLORIDE. [Suspect]
     Active Substance: BUPRENORPHINE HYDROCHLORIDE
     Indication: EXPOSURE DURING PREGNANCY
  10. TETRAHYDROCANNABINOL [Suspect]
     Active Substance: DRONABINOL
     Dosage: UNK
     Route: 064
     Dates: start: 2017
  11. BUPRENORPHINE. [Suspect]
     Active Substance: BUPRENORPHINE
     Indication: EXPOSURE DURING PREGNANCY
     Dosage: 1 DOSAGE UNITS, 1X/DAY
     Route: 064
  12. BUPRENORPHINE HYDROCHLORIDE; NALOXONE HYDROCHLORIDE [Suspect]
     Active Substance: BUPRENORPHINE HYDROCHLORIDE\NALOXONE HYDROCHLORIDE
     Indication: DRUG DEPENDENCE
     Dosage: UNK
     Route: 063
  13. BUPRENORPHINE HYDROCHLORIDE. [Suspect]
     Active Substance: BUPRENORPHINE HYDROCHLORIDE
     Indication: EXPOSURE VIA BREAST MILK
     Dosage: 8-16MG, 1X/DAY
     Route: 064
     Dates: start: 2017, end: 2017
  14. SUBUTEX [Suspect]
     Active Substance: BUPRENORPHINE HYDROCHLORIDE
     Dosage: 1 DOSAGE UNITS, 1X/DAY
     Route: 064
  15. PERCOCET [Suspect]
     Active Substance: ACETAMINOPHEN\OXYCODONE HYDROCHLORIDE
     Indication: EXPOSURE DURING PREGNANCY
     Dosage: 1 EVERY 1 DAY
     Route: 064
     Dates: start: 2017
  16. CITALOPRAM [Suspect]
     Active Substance: CITALOPRAM HYDROBROMIDE
     Indication: DEPRESSION
     Dosage: 20 MG, 1X/DAY
     Route: 064
     Dates: start: 2017, end: 2017
  17. BUPRENORPHINE HYDROCHLORIDE. [Suspect]
     Active Substance: BUPRENORPHINE HYDROCHLORIDE
     Indication: EXPOSURE VIA BREAST MILK
     Dosage: UNK
     Route: 063
     Dates: start: 2017, end: 2017
  18. CITALOPRAM [Suspect]
     Active Substance: CITALOPRAM HYDROBROMIDE
     Indication: DEPRESSION
     Dosage: 20 MG, 1X/DAY
     Route: 063
     Dates: start: 2017, end: 2017
  19. NICOTINE. [Suspect]
     Active Substance: NICOTINE
     Indication: EXPOSURE VIA BREAST MILK
  20. BUPRENORPHINE HYDROCHLORIDE. [Suspect]
     Active Substance: BUPRENORPHINE HYDROCHLORIDE
     Indication: EXPOSURE DURING PREGNANCY
  21. BUPRENORPHINE. [Suspect]
     Active Substance: BUPRENORPHINE
     Indication: DRUG DEPENDENCE
     Dosage: 1 DOSAGE UNITS, 1X/DAY
     Route: 064
  22. CITALOPRAM [Suspect]
     Active Substance: CITALOPRAM HYDROBROMIDE
     Indication: EXPOSURE DURING PREGNANCY
  23. CITALOPRAM [Suspect]
     Active Substance: CITALOPRAM HYDROBROMIDE
     Indication: EXPOSURE VIA BREAST MILK
  24. NICOTINE. [Suspect]
     Active Substance: NICOTINE
     Indication: EXPOSURE DURING PREGNANCY
     Dosage: UNK
     Route: 063
     Dates: start: 2017, end: 2017
  25. CITALOPRAM [Suspect]
     Active Substance: CITALOPRAM HYDROBROMIDE
     Indication: EXPOSURE DURING PREGNANCY
  26. CITALOPRAM [Suspect]
     Active Substance: CITALOPRAM HYDROBROMIDE
     Indication: EXPOSURE VIA BREAST MILK

REACTIONS (7)
  - Pregnancy [Recovered/Resolved]
  - Drug withdrawal syndrome neonatal [Recovered/Resolved]
  - Poor feeding infant [Recovered/Resolved]
  - Exposure via breast milk [Recovered/Resolved]
  - Maternal exposure during breast feeding [Recovered/Resolved]
  - Neonatal respiratory distress [Recovered/Resolved]
  - Foetal exposure during pregnancy [Recovered/Resolved]
